FAERS Safety Report 5178118-8 (Version None)
Quarter: 2006Q4

REPORT INFORMATION
  Report Type: 
  Country: None (occurrence: None)
  Receive Date: 20061208
  Receipt Date: 20061128
  Transmission Date: 20070319
  Serious: Yes (Other)
  Sender: FDA-Public Use
  Company Number: US-2005-025671

PATIENT
  Age: 21 Year
  Sex: Female

DRUGS (1)
  1. MIRENA [Suspect]
     Indication: CONTRACEPTION
     Dosage: 20 UG/DAY, CONT, INTRA-UTERINE
     Route: 015
     Dates: start: 20051019

REACTIONS (14)
  - ABDOMINAL PAIN [None]
  - APPENDICECTOMY [None]
  - BACK PAIN [None]
  - FEELING ABNORMAL [None]
  - HAEMORRHAGE [None]
  - HYPOAESTHESIA [None]
  - MALAISE [None]
  - NAUSEA [None]
  - PELVIC PAIN [None]
  - PROCEDURAL COMPLICATION [None]
  - SYNCOPE VASOVAGAL [None]
  - VAGINAL HAEMORRHAGE [None]
  - VAGINITIS BACTERIAL [None]
  - VOMITING [None]
